FAERS Safety Report 10450650 (Version 3)
Quarter: 2016Q3

REPORT INFORMATION
  Report Type: Spontaneous
  Country: US (occurrence: US)
  Receive Date: 20140912
  Receipt Date: 20160825
  Transmission Date: 20161109
  Serious: Yes (Death, Congenital Anomaly, Other)
  Sender: FDA-Public Use
  Company Number: US-BRISTOL-MYERS SQUIBB COMPANY-21385729

PATIENT
  Age: 6 Day
  Sex: Male

DRUGS (1)
  1. ABILIFY [Suspect]
     Active Substance: ARIPIPRAZOLE
     Indication: PRODUCT USED FOR UNKNOWN INDICATION
     Dosage: UNK
     Route: 064

REACTIONS (7)
  - Dysmorphism [Unknown]
  - Pericardial haemorrhage [Fatal]
  - Multiple congenital abnormalities [Unknown]
  - Foetal exposure during pregnancy [Unknown]
  - Fallot^s tetralogy [Fatal]
  - Haemothorax [Fatal]
  - Premature baby [Unknown]
